FAERS Safety Report 6599488-X (Version None)
Quarter: 2010Q1

REPORT INFORMATION
  Report Type: 
  Country: None (occurrence: None)
  Receive Date: 20100224
  Receipt Date: 20100211
  Transmission Date: 20100710
  Serious: Yes (Death, Hospitalization)
  Sender: FDA-Public Use
  Company Number: DE-GENZYME-POMP-1000853

PATIENT
  Sex: Female
  Weight: 10 kg

DRUGS (2)
  1. MYOZYME [Suspect]
     Indication: GLYCOGEN STORAGE DISEASE TYPE II
     Dosage: 200 MG, 1X/W
     Route: 042
     Dates: start: 20080201, end: 20100105
  2. ANTRA [Concomitant]
     Indication: GASTROOESOPHAGEAL REFLUX DISEASE
     Dosage: UNK UNK, UNK
     Route: 065
     Dates: start: 20070101

REACTIONS (3)
  - CARDIAC FAILURE [None]
  - PNEUMONIA [None]
  - SEPSIS [None]
